FAERS Safety Report 10542973 (Version 1)
Quarter: 2014Q4

REPORT INFORMATION
  Report Type: Spontaneous
  Country: US (occurrence: None)
  Receive Date: 20141024
  Receipt Date: 20141024
  Transmission Date: 20150529
  Serious: Yes (Disabling, Other)
  Sender: FDA-Public Use
  Company Number: None

PATIENT
  Age: 31 Year
  Sex: Male
  Weight: 97.52 kg

DRUGS (1)
  1. CIPROFLAXIN [Suspect]
     Active Substance: CIPROFLOXACIN
     Indication: PROSTATE INFECTION
     Dosage: 1 PILL TWICE DAILY TAKEN BY MOUTH
     Route: 048
     Dates: start: 20131005, end: 20131016

REACTIONS (8)
  - Arthralgia [None]
  - Tendon injury [None]
  - Neck pain [None]
  - Pain in extremity [None]
  - Tendonitis [None]
  - Mucosal erosion [None]
  - Pelvic pain [None]
  - Gastritis erosive [None]

NARRATIVE: CASE EVENT DATE: 20131005
